FAERS Safety Report 5354574-7 (Version None)
Quarter: 2007Q2

REPORT INFORMATION
  Report Type: 
  Country: None (occurrence: None)
  Receive Date: 20070611
  Receipt Date: 20070524
  Transmission Date: 20071010
  Serious: Yes (Life-Threatening, Other)
  Sender: FDA-Public Use
  Company Number: 2007US001114

PATIENT
  Age: 75 Year
  Sex: Male

DRUGS (11)
  1. AMBISOME [Suspect]
     Indication: BRONCHOPULMONARY ASPERGILLOSIS
     Dosage: 50 MG, UID/QD, IV DRIP
     Route: 041
     Dates: start: 20070416, end: 20070422
  2. ISONIAZID [Suspect]
     Indication: PULMONARY TUBERCULOSIS
     Dosage: 200 MG, UID/QD, ORAL
     Route: 048
     Dates: start: 20070411, end: 20070422
  3. RIFADIN [Suspect]
     Indication: PULMONARY TUBERCULOSIS
     Dosage: 300 MG, UID/QD, ORAL
     Route: 048
     Dates: start: 20070411, end: 20070422
  4. ETHAMBUTOL HYDROCHLORIDE [Suspect]
     Indication: PULMONARY TUBERCULOSIS
     Dosage: 750 MG, UID/QD, ORAL
     Route: 048
     Dates: start: 20070411, end: 20070422
  5. EPINASTINE HYDROCHLORIDE (EPINASTINE HYDROCHLORIDE) [Concomitant]
  6. QUESTRAN [Concomitant]
  7. FAMOTIDINE [Concomitant]
  8. FALKAMIN (LEUCINE, VALINE, ISOLEUCINE) [Concomitant]
  9. AVELOX [Concomitant]
  10. MUCOSOLVAN L (AMBROXOL HYDROCHLORIDE) [Concomitant]
  11. VITAMEDIN (BENFOTIAMINE) [Concomitant]

REACTIONS (8)
  - ANAEMIA [None]
  - DRUG INTERACTION [None]
  - EOSINOPHILIA [None]
  - EPISTAXIS [None]
  - GASTROINTESTINAL HAEMORRHAGE [None]
  - MOUTH HAEMORRHAGE [None]
  - PRURITUS GENERALISED [None]
  - THROMBOCYTOPENIA [None]
